FAERS Safety Report 5903387-3 (Version None)
Quarter: 2008Q3

REPORT INFORMATION
  Report Type: 
  Country: None (occurrence: None)
  Receive Date: 20080926
  Receipt Date: 20080915
  Transmission Date: 20090109
  Serious: Yes (Hospitalization)
  Sender: FDA-Public Use
  Company Number: DSA_32429_2008

PATIENT
  Sex: Male

DRUGS (5)
  1. LORAZEPAM [Suspect]
     Dosage: (20 MG 1X NOT THE PRESCRIBED AMOUNT ORAL)
     Route: 048
     Dates: start: 20080914, end: 20080914
  2. LENDORM [Suspect]
     Dosage: (1.5 MG 1X NOT THE PRESCRIBED AMOUNT ORAL)
     Route: 048
     Dates: start: 20080914, end: 20080914
  3. OPIPRAMOL (OPIPRAMOL) 50 MG [Suspect]
     Dosage: (1000 MG 1X NOT THE PRESCRIBED AMOUNT ORAL)
     Route: 048
     Dates: start: 20080914, end: 20080914
  4. OXAZEPAM (OXAZEPAM) 10 MG [Suspect]
     Dosage: (100 MG 1X NOT THE PRESCRIBED AMOUNT ORAL)
     Route: 048
     Dates: start: 20080914, end: 20080914
  5. ETHANOL (ALCOHOL - ETHANOL) [Suspect]
     Dosage: (AMOUNT NOT PROVIDED ORAL)
     Route: 048
     Dates: start: 20080914, end: 20080914

REACTIONS (7)
  - ALCOHOL USE [None]
  - ASPIRATION [None]
  - COMA [None]
  - MULTIPLE DRUG OVERDOSE INTENTIONAL [None]
  - SOMNOLENCE [None]
  - SUICIDE ATTEMPT [None]
  - VOMITING [None]
